FAERS Safety Report 9095740 (Version 2)
Quarter: 2013Q1

REPORT INFORMATION
  Report Type: Spontaneous
  Country: US (occurrence: US)
  Receive Date: 20130204
  Receipt Date: 20130208
  Transmission Date: 20140127
  Serious: Yes (Other)
  Sender: FDA-Public Use
  Company Number: US-RB-049178-13

PATIENT
  Age: 73 Year
  Sex: Male

DRUGS (5)
  1. MUCINEX FAST-MAX COLD, FLU AND SORE THROAT [Suspect]
     Indication: INFLUENZA
     Dosage: PATIENT TOOK PRODUCTFOR APPROXIMATELY ONE WEEK.
     Route: 048
     Dates: end: 20130127
  2. MUCINEX FAST-MAX COLD, FLU AND SORE THROAT [Suspect]
  3. MUCINEX FAST-MAX COLD, FLU AND SORE THROAT [Suspect]
  4. MUCINEX FAST-MAX COLD, FLU AND SORE THROAT [Suspect]
  5. ANTIBIOTICS [Concomitant]
     Indication: PRODUCT USED FOR UNKNOWN INDICATION

REACTIONS (1)
  - Blood glucose increased [Not Recovered/Not Resolved]
